FAERS Safety Report 12303077 (Version 1)
Quarter: 2016Q2

REPORT INFORMATION
  Report Type: Spontaneous
  Country: US (occurrence: US)
  Receive Date: 20160426
  Receipt Date: 20160426
  Transmission Date: 20160815
  Serious: No
  Sender: FDA-Public Use
  Company Number: US-JNJFOC-20151008437

PATIENT
  Sex: Male

DRUGS (2)
  1. INVEGA [Suspect]
     Active Substance: PALIPERIDONE
     Indication: SLEEP DISORDER
     Dosage: 1-3 MG
     Route: 048
     Dates: start: 2009
  2. RISPERDAL [Suspect]
     Active Substance: RISPERIDONE
     Indication: SLEEP DISORDER
     Dosage: 0.125 MG-1 MG
     Route: 048
     Dates: start: 2008, end: 2009

REACTIONS (4)
  - Product use issue [Unknown]
  - Off label use [Unknown]
  - Abnormal weight gain [Not Recovered/Not Resolved]
  - Gynaecomastia [Not Recovered/Not Resolved]

NARRATIVE: CASE EVENT DATE: 2008
